FAERS Safety Report 5036386-7 (Version None)
Quarter: 2006Q2

REPORT INFORMATION
  Report Type: 
  Country: None (occurrence: None)
  Receive Date: 20060601
  Receipt Date: 20060419
  Transmission Date: 20061013
  Serious: No
  Sender: FDA-Public Use
  Company Number: US200604003267

PATIENT
  Age: 28 Year
  Sex: Male

DRUGS (2)
  1. CYMBALTA [Suspect]
     Indication: NEURALGIA
     Dosage: 60 MG, EACH EVENING
     Dates: start: 20060301
  2. ARTHROTEC [Concomitant]

REACTIONS (1)
  - ABNORMAL DREAMS [None]
